FAERS Safety Report 8042693-6 (Version None)
Quarter: 2012Q1

REPORT INFORMATION
  Report Type: 
  Country: None (occurrence: None)
  Receive Date: 20120112
  Receipt Date: 20120105
  Transmission Date: 20120608
  Serious: Yes (Hospitalization, Disabling, Other)
  Sender: FDA-Public Use
  Company Number: US-MERCK-1109USA01506

PATIENT
  Age: 67 Year
  Sex: Female
  Weight: 70 kg

DRUGS (12)
  1. VITAMIN E [Concomitant]
     Route: 065
  2. FOSAMAX [Suspect]
     Indication: OSTEOPOROSIS
     Route: 048
     Dates: start: 19960227, end: 20020821
  3. FOSAMAX [Suspect]
     Route: 048
     Dates: start: 20061107, end: 20070813
  4. FLAXSEED [Concomitant]
     Route: 065
  5. VITAMIN D (UNSPECIFIED) [Concomitant]
     Route: 065
  6. RED YEAST [Concomitant]
     Route: 065
  7. PROZAC [Concomitant]
     Indication: DEPRESSION
     Route: 065
     Dates: start: 19920101, end: 20040101
  8. FOSAMAX PLUS D [Suspect]
     Indication: OSTEOPOROSIS
     Route: 048
     Dates: start: 20060306, end: 20070911
  9. FOSAMAX [Suspect]
     Route: 048
     Dates: start: 20020101, end: 20060101
  10. VITAMINS (UNSPECIFIED) [Concomitant]
     Route: 065
  11. CALCIUM (UNSPECIFIED) [Concomitant]
     Route: 065
  12. ASCORBIC ACID [Concomitant]
     Route: 065

REACTIONS (30)
  - HYPOKALAEMIA [None]
  - HYPERLIPIDAEMIA [None]
  - FEMUR FRACTURE [None]
  - ARTHRITIS [None]
  - FALL [None]
  - LUNG ADENOCARCINOMA METASTATIC [None]
  - SMALL INTESTINAL OBSTRUCTION [None]
  - DIABETES MELLITUS [None]
  - OSTEOPOROSIS [None]
  - VOMITING [None]
  - SCIATICA [None]
  - DRUG INTOLERANCE [None]
  - CHEST PAIN [None]
  - LOW TURNOVER OSTEOPATHY [None]
  - GASTRITIS [None]
  - HYPERTENSION [None]
  - INTESTINAL ADENOCARCINOMA [None]
  - BARRETT'S OESOPHAGUS [None]
  - COLON DYSPLASIA [None]
  - COLON ADENOMA [None]
  - CONSTIPATION [None]
  - STRESS FRACTURE [None]
  - RHINITIS ALLERGIC [None]
  - LUNG NEOPLASM [None]
  - HIATUS HERNIA [None]
  - GASTROOESOPHAGEAL REFLUX DISEASE [None]
  - HAEMORRHAGIC ANAEMIA [None]
  - TOOTH DISORDER [None]
  - NAUSEA [None]
  - HYPOTHYROIDISM [None]
